FAERS Safety Report 8520797-9 (Version None)
Quarter: 2012Q3

REPORT INFORMATION
  Report Type: 
  Country: None (occurrence: None)
  Receive Date: 20120719
  Receipt Date: 20120709
  Transmission Date: 20120928
  Serious: Yes (Death)
  Sender: FDA-Public Use
  Company Number: IT-CELGENEUS-083-21880-12032889

PATIENT
  Sex: Female

DRUGS (6)
  1. DEXAMETHASONE SODIUM PHOSPHATE [Concomitant]
     Indication: NON-HODGKIN'S LYMPHOMA
     Route: 065
     Dates: start: 20100901
  2. RITUXIMAB [Concomitant]
     Indication: NON-HODGKIN'S LYMPHOMA
     Route: 065
     Dates: start: 20100825
  3. VINCRISTINE [Concomitant]
     Indication: NON-HODGKIN'S LYMPHOMA
     Route: 065
     Dates: start: 20100901
  4. REVLIMID [Suspect]
     Dosage: 20 MILLIGRAM
     Route: 048
     Dates: start: 20100820, end: 20101005
  5. VALACYCLOVIR HYDROCHLORIDE [Concomitant]
     Indication: BRONCHOPNEUMONIA
     Route: 065
     Dates: start: 20100901, end: 20100901
  6. VORICONAZOLE [Concomitant]
     Indication: HERPES ZOSTER
     Route: 065
     Dates: start: 20100901, end: 20100901

REACTIONS (1)
  - DIFFUSE LARGE B-CELL LYMPHOMA [None]
